FAERS Safety Report 8503811-6 (Version None)
Quarter: 2012Q3

REPORT INFORMATION
  Report Type: 
  Country: None (occurrence: None)
  Receive Date: 20120711
  Receipt Date: 20120629
  Transmission Date: 20120928
  Serious: Yes (Disabling, Other)
  Sender: FDA-Public Use
  Company Number: US-JNJFOC-20120503233

PATIENT
  Sex: Male
  Weight: 83.01 kg

DRUGS (7)
  1. ROWASA [Suspect]
     Indication: COLITIS ULCERATIVE
     Route: 054
     Dates: start: 20120201
  2. REMICADE [Suspect]
     Indication: COLITIS ULCERATIVE
     Route: 042
     Dates: end: 20120412
  3. NEXIUM [Concomitant]
     Indication: GASTROOESOPHAGEAL REFLUX DISEASE
     Route: 048
     Dates: start: 20110201
  4. PENTASA [Concomitant]
     Indication: GASTROINTESTINAL DISORDER
     Dosage: TWICE IN A DAY
     Route: 048
     Dates: start: 20000301
  5. REMICADE [Suspect]
     Route: 042
     Dates: start: 20070511, end: 20120103
  6. MULTI-VITAMINS [Concomitant]
     Route: 048
     Dates: start: 20120201
  7. ALL OTHER THERAPEUTIC PRODUCTS [Concomitant]
     Indication: COLITIS ULCERATIVE
     Route: 048
     Dates: start: 20060101

REACTIONS (11)
  - EATING DISORDER [None]
  - EAR PAIN [None]
  - VITAMIN D DECREASED [None]
  - ACUTE SINUSITIS [None]
  - DIPLOPIA [None]
  - WEIGHT DECREASED [None]
  - VOMITING [None]
  - MULTIPLE SCLEROSIS [None]
  - VIRAL UPPER RESPIRATORY TRACT INFECTION [None]
  - NAUSEA [None]
  - DIZZINESS [None]
